FAERS Safety Report 5086278-2 (Version None)
Quarter: 2006Q3

REPORT INFORMATION
  Report Type: 
  Country: None (occurrence: None)
  Receive Date: 20060703
  Receipt Date: 20050913
  Transmission Date: 20061208
  Serious: No
  Sender: FDA-Public Use
  Company Number: 2005S1009338

PATIENT
  Age: 14 Year
  Sex: Male

DRUGS (6)
  1. CLOZAPINE [Suspect]
     Indication: SCHIZOPHRENIA
     Dosage: SEE IMAGE
     Route: 048
     Dates: start: 20040601
  2. CLOZAPINE [Suspect]
     Indication: SCHIZOPHRENIA
     Dosage: SEE IMAGE
     Route: 048
     Dates: start: 20040601
  3. VALPROATE SODIUM [Concomitant]
  4. ARIPIPRAZOLE [Concomitant]
  5. LORAZEPAM [Concomitant]
  6. VITAMINS NOS [Concomitant]

REACTIONS (1)
  - GRANULOCYTOPENIA [None]
